FAERS Safety Report 23747584 (Version 1)
Quarter: 2024Q2

REPORT INFORMATION
  Report Type: Spontaneous
  Country: US (occurrence: None)
  Receive Date: 20240415
  Receipt Date: 20240415
  Transmission Date: 20240716
  Serious: No
  Sender: FDA-Public Use
  Company Number: None

PATIENT

DRUGS (1)
  1. ZOLPIDEM [Suspect]
     Active Substance: ZOLPIDEM TARTRATE

REACTIONS (7)
  - Atrial fibrillation [None]
  - Atrial flutter [None]
  - Product use issue [None]
  - Therapy interrupted [None]
  - Psychomotor hyperactivity [None]
  - Fatigue [None]
  - Dehydration [None]
